FAERS Safety Report 13204142 (Version 1)
Quarter: 2017Q1

REPORT INFORMATION
  Report Type: Spontaneous
  Country: BR (occurrence: BR)
  Receive Date: 20170209
  Receipt Date: 20170209
  Transmission Date: 20170428
  Serious: Yes (Other)
  Sender: FDA-Public Use
  Company Number: BR-GLAXOSMITHKLINE-BR2017GSK000129

PATIENT
  Sex: Female
  Weight: 57.5 kg

DRUGS (3)
  1. NIQUITIN [Suspect]
     Active Substance: NICOTINE
     Indication: SMOKING CESSATION THERAPY
     Dosage: 1 DF, QD (14MG)
     Route: 062
     Dates: start: 20161201
  2. NIQUITIN [Suspect]
     Active Substance: NICOTINE
     Dosage: 1 DF, QD (7MG)
     Route: 062
     Dates: start: 20170101
  3. VITAMIN B3 [Concomitant]
     Active Substance: NIACIN

REACTIONS (9)
  - Application site swelling [Not Recovered/Not Resolved]
  - Product quality issue [Unknown]
  - Urinary tract infection [Recovered/Resolved]
  - Drug effect decreased [Unknown]
  - Skin burning sensation [Recovered/Resolved]
  - Application site pain [Not Recovered/Not Resolved]
  - Pruritus [Recovered/Resolved]
  - Abdominal distension [Not Recovered/Not Resolved]
  - Dysentery [Unknown]
